FAERS Safety Report 8257135-5 (Version None)
Quarter: 2012Q2

REPORT INFORMATION
  Report Type: 
  Country: None (occurrence: None)
  Receive Date: 20120403
  Receipt Date: 20120321
  Transmission Date: 20120825
  Serious: Yes (Other)
  Sender: FDA-Public Use
  Company Number: US-BAYER-2012-028156

PATIENT
  Age: 81 Year
  Sex: Female
  Weight: 50 kg

DRUGS (12)
  1. ALKA-SELTZER PLUS COLD + COUGH [Suspect]
     Indication: NASOPHARYNGITIS
     Dosage: UNK
     Route: 048
     Dates: start: 20120317, end: 20120320
  2. CRANBERRY [Concomitant]
  3. ALKA-SELTZER PLUS NIGHT COLD [Suspect]
     Indication: NASOPHARYNGITIS
     Dosage: 2 DF, QD
     Route: 048
     Dates: start: 20120301, end: 20120320
  4. ALKA-SELTZER PLUS COLD FORMULA ORANGE ZEST [Suspect]
     Indication: NASOPHARYNGITIS
     Dosage: 2 DF, QD
     Route: 048
     Dates: start: 20120301, end: 20120320
  5. MULTI-VITAMINS [Concomitant]
  6. GARLIC [Concomitant]
  7. ASPIRIN [Concomitant]
  8. B COMPLEX WITH VITAMIN C [Concomitant]
  9. RED YEAST RICE [Concomitant]
  10. FISH OIL [Concomitant]
  11. LEVOTHYROXINE SODIUM [Concomitant]
  12. VITAMIN D [Concomitant]

REACTIONS (4)
  - ABDOMINAL DISCOMFORT [None]
  - HAEMATOCHEZIA [None]
  - COUGH [None]
  - FAECES DISCOLOURED [None]
